FAERS Safety Report 13433262 (Version 1)
Quarter: 2017Q2

REPORT INFORMATION
  Report Type: Spontaneous
  Country: US (occurrence: US)
  Receive Date: 20170412
  Receipt Date: 20170412
  Transmission Date: 20170830
  Serious: No
  Sender: FDA-Public Use
  Company Number: US-009507513-1704USA003031

PATIENT
  Sex: Female

DRUGS (21)
  1. NUTRITIONAL SUPPLEMENTS [Concomitant]
     Active Substance: DIETARY SUPPLEMENT
  2. LOTEMAX [Concomitant]
     Active Substance: LOTEPREDNOL ETABONATE
  3. LUMIGAN [Concomitant]
     Active Substance: BIMATOPROST
  4. GABAPENTIN. [Concomitant]
     Active Substance: GABAPENTIN
  5. COMBIVENT [Concomitant]
     Active Substance: ALBUTEROL SULFATE\IPRATROPIUM BROMIDE
  6. KEPPRA [Concomitant]
     Active Substance: LEVETIRACETAM
  7. NITRO-DUR [Concomitant]
     Active Substance: NITROGLYCERIN
  8. BACLOFEN. [Concomitant]
     Active Substance: BACLOFEN
  9. LACTULOSE. [Concomitant]
     Active Substance: LACTULOSE
  10. COLACE [Concomitant]
     Active Substance: DOCUSATE SODIUM
  11. PROVIGIL [Concomitant]
     Active Substance: MODAFINIL
  12. SINGULAIR [Concomitant]
     Active Substance: MONTELUKAST SODIUM
  13. BELSOMRA [Suspect]
     Active Substance: SUVOREXANT
     Indication: INSOMNIA
     Dosage: UNK
     Route: 048
  14. PROVENTIL [Concomitant]
     Active Substance: ALBUTEROL
  15. LAMICTAL [Concomitant]
     Active Substance: LAMOTRIGINE
  16. MORPHINE IR [Concomitant]
     Active Substance: MORPHINE
     Dosage: 15 MG TAKEN TWICE A DAY AS NEEDED
  17. VITAMIN D [Concomitant]
     Active Substance: CHOLECALCIFEROL
  18. NASONEX [Concomitant]
     Active Substance: MOMETASONE FUROATE
  19. OXYBUTYNIN [Concomitant]
     Active Substance: OXYBUTYNIN
  20. BOTOX [Concomitant]
     Active Substance: ONABOTULINUMTOXINA
  21. MAXALT [Concomitant]
     Active Substance: RIZATRIPTAN BENZOATE

REACTIONS (4)
  - Weight increased [Unknown]
  - Adverse event [Unknown]
  - Hypertension [Unknown]
  - Sleep disorder [Unknown]
